FAERS Safety Report 8300111 (Version 2)
Quarter: 2012Q4

REPORT INFORMATION
  Report Type: 
  Country: US (occurrence: US)
  Receive Date: 20111219
  Receipt Date: 20121112
  Transmission Date: 20130627
  Serious: Yes (Other)
  Sender: FDA-Public Use
  Company Number: US-ASTRAZENECA-2011SE00938

PATIENT
  Age: 57 Year
  Sex: Female

DRUGS (2)
  1. CRESTOR [Suspect]
     Route: 048
  2. LIPITOR [Concomitant]

REACTIONS (5)
  - Atrial fibrillation [Unknown]
  - Renal disorder [Unknown]
  - Renal failure [Unknown]
  - Renal artery stenosis [Unknown]
  - Coombs positive haemolytic anaemia [Unknown]
